FAERS Safety Report 6684449-2 (Version None)
Quarter: 2010Q2

REPORT INFORMATION
  Report Type: 
  Country: None (occurrence: None)
  Receive Date: 20100416
  Receipt Date: 20100408
  Transmission Date: 20101027
  Serious: Yes (Life-Threatening)
  Sender: FDA-Public Use
  Company Number: GXKR2010GB03998

PATIENT
  Age: 68 Year
  Sex: Female

DRUGS (3)
  1. OXALIPLATIN [Suspect]
     Indication: GASTROINTESTINAL CARCINOMA
     Dosage: 130 MG, UNK
     Dates: start: 20091101
  2. FLUOROURACIL [Suspect]
     Indication: GASTROINTESTINAL CARCINOMA
     Dosage: 660 MG, UNK
     Dates: start: 20091101
  3. FLUOROURACIL [Suspect]
     Dosage: 3750 MG, UNK

REACTIONS (1)
  - EJECTION FRACTION DECREASED [None]
